FAERS Safety Report 22601957 (Version 1)
Quarter: 2023Q2

REPORT INFORMATION
  Report Type: Spontaneous
  Country: US (occurrence: None)
  Receive Date: 20230613
  Receipt Date: 20230613
  Transmission Date: 20230722
  Serious: Yes (Other)
  Sender: FDA-Public Use
  Company Number: None

PATIENT
  Age: 25 Year
  Sex: Female

DRUGS (1)
  1. LEVOTHYROXINE [Suspect]
     Active Substance: LEVOTHYROXINE
     Dates: end: 20110317

REACTIONS (5)
  - Alopecia [None]
  - Rash [None]
  - Constipation [None]
  - Fatigue [None]
  - Dry skin [None]

NARRATIVE: CASE EVENT DATE: 20110120
